FAERS Safety Report 9833373 (Version 1)
Quarter: 2014Q1

REPORT INFORMATION
  Report Type: Spontaneous
  Country: US (occurrence: US)
  Receive Date: 20140121
  Receipt Date: 20140121
  Transmission Date: 20141002
  Serious: Yes (Death, Hospitalization)
  Sender: FDA-Public Use
  Company Number: US-JNJFOC-20140107803

PATIENT
  Age: 43 Year
  Sex: Female

DRUGS (1)
  1. PARACETAMOL/DIPHENHYDRAMINE [Suspect]
     Indication: SUICIDE ATTEMPT
     Dosage: 96 TABLETS
     Route: 048

REACTIONS (8)
  - Intentional overdose [Fatal]
  - Completed suicide [Fatal]
  - Hepatic necrosis [Fatal]
  - Mental impairment [Unknown]
  - Agitation [Unknown]
  - Brain oedema [Unknown]
  - Brain herniation [Unknown]
  - Eye haemorrhage [Unknown]
